FAERS Safety Report 6921125-2 (Version None)
Quarter: 2010Q3

REPORT INFORMATION
  Report Type: 
  Country: None (occurrence: None)
  Receive Date: 20100812
  Receipt Date: 20100806
  Transmission Date: 20110219
  Serious: Yes (Other)
  Sender: FDA-Public Use
  Company Number: A0874416A

PATIENT
  Age: 73 Year
  Sex: Male

DRUGS (2)
  1. ZEASORB AF POWDER [Suspect]
     Indication: TINEA CRURIS
     Dosage: 1APP TWICE PER DAY
     Route: 061
     Dates: start: 20100701
  2. LOTION [Concomitant]
     Route: 061

REACTIONS (3)
  - HAEMORRHAGE [None]
  - PENIS DISORDER [None]
  - SKIN CHAPPED [None]
